FAERS Safety Report 6361316-5 (Version None)
Quarter: 2009Q3

REPORT INFORMATION
  Report Type: 
  Country: None (occurrence: None)
  Receive Date: 20090918
  Receipt Date: 20090914
  Transmission Date: 20100115
  Serious: Yes (Congenital Anomaly)
  Sender: FDA-Public Use
  Company Number: A0748066A

PATIENT
  Sex: Male

DRUGS (8)
  1. PAXIL [Suspect]
     Indication: DEPRESSION
     Dates: start: 19930101, end: 20050101
  2. VITAMIN TAB [Concomitant]
  3. MACROBID [Concomitant]
  4. IMODIUM A-D [Concomitant]
  5. COMPAZINE [Concomitant]
  6. IRON [Concomitant]
  7. MACROBID [Concomitant]
  8. UNSPECIFIED ANTIBIOTIC [Concomitant]

REACTIONS (4)
  - CONGENITAL GENITOURINARY ABNORMALITY [None]
  - DRUG EXPOSURE DURING PREGNANCY [None]
  - HYPOSPADIAS [None]
  - MULTIPLE CONGENITAL ABNORMALITIES [None]
